FAERS Safety Report 9723750 (Version 1)
Quarter: 2013Q4

REPORT INFORMATION
  Report Type: Spontaneous
  Country: CH (occurrence: CH)
  Receive Date: 20131202
  Receipt Date: 20131202
  Transmission Date: 20140711
  Serious: Yes (Hospitalization, Other)
  Sender: FDA-Public Use
  Company Number: CH-PFIZER INC-2013338777

PATIENT
  Age: 62 Year
  Sex: Female
  Weight: 90 kg

DRUGS (4)
  1. XANAX [Suspect]
     Dosage: UNK
     Route: 048
     Dates: end: 20130930
  2. MINRIN [Suspect]
     Indication: NOCTURIA
     Dosage: UNK
     Route: 048
     Dates: end: 20130930
  3. SEROPRAM [Suspect]
     Dosage: UNK
     Route: 048
     Dates: end: 20130930
  4. DORMICUM [Suspect]
     Dosage: UNK
     Route: 048
     Dates: end: 20130930

REACTIONS (4)
  - Altered state of consciousness [Recovered/Resolved]
  - Hyponatraemia [Recovered/Resolved]
  - Drug abuse [Recovered/Resolved]
  - Blood osmolarity decreased [Unknown]
